FAERS Safety Report 12619811 (Version 5)
Quarter: 2016Q4

REPORT INFORMATION
  Report Type: Report from Study
  Country: None (occurrence: BE)
  Receive Date: 20160803
  Receipt Date: 20161008
  Transmission Date: 20170207
  Serious: Yes (Hospitalization)
  Sender: FDA-Public Use
  Company Number: BE-ABBVIE-15P-013-1494615-00

PATIENT
  Age: 78 Year
  Sex: Female

DRUGS (12)
  1. DUODOPA [Suspect]
     Active Substance: CARBIDOPA\LEVODOPA
     Dosage: AM= 4 ML; CD= 2.4 ML/H DURING 16 HRS; ND= 1.2 ML/H DURING 8HRS; ED= 2 ML
     Route: 050
     Dates: start: 20160729
  2. DUODOPA [Suspect]
     Active Substance: CARBIDOPA\LEVODOPA
     Dosage: AM=5.5ML;CD=2.6ML/HR DURING 16HRS;ED=2ML
     Route: 050
     Dates: start: 20160527, end: 20160603
  3. DUODOPA [Suspect]
     Active Substance: CARBIDOPA\LEVODOPA
     Dosage: TRANSITION TO 24H SCHEME
     Route: 050
     Dates: start: 20160726, end: 20160727
  4. PROLOPA [Concomitant]
     Active Substance: BENSERAZIDE\LEVODOPA
     Indication: PRODUCT USED FOR UNKNOWN INDICATION
     Dosage: DOSE STRENGTH=200MG/ 50MG; UNIT DOSE=0.5 TABLET
  5. PROLOPA [Concomitant]
     Active Substance: BENSERAZIDE\LEVODOPA
     Dosage: DOSE STRENGTH=200MG/ 50MG; UNIT DOSE=0.5 TABLET
  6. DUODOPA [Suspect]
     Active Substance: CARBIDOPA\LEVODOPA
     Dosage: DOSES CONTINUOUSLY MONITORED AND ADAPTED
     Route: 050
     Dates: start: 20110929, end: 20150914
  7. DUODOPA [Suspect]
     Active Substance: CARBIDOPA\LEVODOPA
     Dosage: AM=7ML; CD=2.7ML/HR DURING 16HRS; ED=2ML
     Route: 050
     Dates: start: 20150914, end: 20160229
  8. DUODOPA [Suspect]
     Active Substance: CARBIDOPA\LEVODOPA
     Dosage: AM= UNKNOWN; CD= 2.1 ML/H DURING 16 HRS; ND= 1.2 ML/H DURING 8 HRS; ED= 2 ML
     Route: 050
     Dates: start: 20160727, end: 20160729
  9. DUODOPA [Suspect]
     Active Substance: CARBIDOPA\LEVODOPA
     Dosage: AM DOSE=5.5ML; CD=2.7ML/H DURING 16HRS AND ED=2ML
     Route: 050
     Dates: start: 20160603
  10. DUODOPA [Suspect]
     Active Substance: CARBIDOPA\LEVODOPA
     Dosage: AM=7ML;CD=2.5ML/HR DURING 16HRS;ED=2ML
     Route: 050
     Dates: start: 20160229, end: 20160308
  11. DUODOPA [Suspect]
     Active Substance: CARBIDOPA\LEVODOPA
     Indication: PARKINSON^S DISEASE
     Dosage: AM=8ML; CD=1.3ML/HR DURING 16HRS; ED=1ML
     Route: 050
     Dates: start: 20110912, end: 20110929
  12. DUODOPA [Suspect]
     Active Substance: CARBIDOPA\LEVODOPA
     Dosage: AM=6ML;CD=2.6ML/HR DURING 16HRS;ED=2ML
     Route: 050
     Dates: start: 20160308, end: 20160527

REACTIONS (14)
  - Stoma site hypersensitivity [Not Recovered/Not Resolved]
  - Dyskinesia [Unknown]
  - Extra dose administered [Unknown]
  - Dyskinesia [Recovered/Resolved]
  - Stoma site hypergranulation [Not Recovered/Not Resolved]
  - Freezing phenomenon [Recovering/Resolving]
  - Drug effect incomplete [Unknown]
  - Dystonia [Unknown]
  - Device occlusion [Not Recovered/Not Resolved]
  - Device occlusion [Unknown]
  - Dyskinesia [Unknown]
  - Device alarm issue [Unknown]
  - On and off phenomenon [Unknown]
  - Freezing phenomenon [Unknown]

NARRATIVE: CASE EVENT DATE: 201607
